FAERS Safety Report 7008411-5 (Version None)
Quarter: 2010Q3

REPORT INFORMATION
  Report Type: 
  Country: None (occurrence: None)
  Receive Date: 20100922
  Receipt Date: 20100913
  Transmission Date: 20110219
  Serious: Yes (Hospitalization)
  Sender: FDA-Public Use
  Company Number: B0675514A

PATIENT
  Sex: Female

DRUGS (5)
  1. DIGOXIN [Suspect]
  2. APIXABAN [Suspect]
     Indication: THROMBOSIS PROPHYLAXIS
     Route: 048
     Dates: start: 20091104
  3. WARFARIN SODIUM [Suspect]
     Indication: THROMBOSIS PROPHYLAXIS
     Route: 048
     Dates: start: 20091104
  4. PLACEBO [Suspect]
     Indication: THROMBOSIS PROPHYLAXIS
     Route: 048
     Dates: start: 20091104
  5. METOCLOPRAMIDE [Concomitant]
     Dates: start: 20100221, end: 20100221

REACTIONS (4)
  - ASTHENIA [None]
  - LEUKOCYTOSIS [None]
  - NAUSEA [None]
  - THERAPEUTIC AGENT TOXICITY [None]
